FAERS Safety Report 23903907 (Version 1)
Quarter: 2024Q2

REPORT INFORMATION
  Report Type: Spontaneous
  Country: AU (occurrence: AU)
  Receive Date: 20240527
  Receipt Date: 20240527
  Transmission Date: 20240716
  Serious: Yes (Other)
  Sender: FDA-Public Use
  Company Number: AU-OPELLA-2024OHG018093

PATIENT
  Age: 50 Year
  Sex: Female

DRUGS (5)
  1. CORTIZONE 10 EASY RELIEF [Suspect]
     Active Substance: HYDROCORTISONE
     Indication: Hypersensitivity
     Route: 065
  2. PROMETHAZINE HYDROCHLORIDE [Suspect]
     Active Substance: PROMETHAZINE HYDROCHLORIDE
     Indication: Hypersensitivity
     Route: 042
     Dates: start: 202309
  3. BACLOFEN [Concomitant]
     Active Substance: BACLOFEN
     Indication: Multiple sclerosis
     Route: 065
  4. OCREVUS [Concomitant]
     Active Substance: OCRELIZUMAB
     Indication: Multiple sclerosis
     Route: 065
  5. ENDEP [Concomitant]
     Active Substance: AMITRIPTYLINE HYDROCHLORIDE
     Indication: Multiple sclerosis
     Route: 065

REACTIONS (2)
  - Thrombophlebitis [Not Recovered/Not Resolved]
  - Off label use [Unknown]

NARRATIVE: CASE EVENT DATE: 20230928
